FAERS Safety Report 25864862 (Version 1)
Quarter: 2025Q3

REPORT INFORMATION
  Report Type: Spontaneous
  Country: EU (occurrence: EU)
  Receive Date: 20250930
  Receipt Date: 20250930
  Transmission Date: 20251020
  Serious: Yes (Other)
  Sender: REGENERON
  Company Number: EU-BAYER-2025A128144

PATIENT
  Sex: Female

DRUGS (1)
  1. EYLEA [Suspect]
     Active Substance: AFLIBERCEPT
     Indication: Retinal vein occlusion
     Route: 031
     Dates: start: 20250901

REACTIONS (2)
  - Keratic precipitates [Unknown]
  - Vitreous disorder [Unknown]

NARRATIVE: CASE EVENT DATE: 20250901
